FAERS Safety Report 10763008 (Version 2)
Quarter: 2015Q1

REPORT INFORMATION
  Report Type: Report from Study
  Country: BR (occurrence: BR)
  Receive Date: 20150204
  Receipt Date: 20150311
  Transmission Date: 20150721
  Serious: Yes (Other)
  Sender: FDA-Public Use
  Company Number: BR-ABBVIE-09P-020-0612183-00

PATIENT
  Age: 67 Year
  Sex: Female
  Weight: 69 kg

DRUGS (14)
  1. HUMIRA [Suspect]
     Active Substance: ADALIMUMAB
     Route: 058
     Dates: end: 200910
  2. FAMOTIDINE/PREDNISONE/NIMESULIDE/CYCLOBENZAPRINE [Concomitant]
     Indication: RHEUMATIC DISORDER
     Dosage: (25MG/2.5MG/100MG/5MG)
     Route: 048
     Dates: start: 2009
  3. GINKO BILOBA [Concomitant]
     Active Substance: GINKGO
     Indication: PHYTOTHERAPY
     Route: 048
     Dates: start: 2003
  4. ATENOLOL. [Concomitant]
     Active Substance: ATENOLOL
     Indication: BLOOD PRESSURE ABNORMAL
     Route: 048
     Dates: start: 2010
  5. HUMIRA [Suspect]
     Active Substance: ADALIMUMAB
     Route: 058
     Dates: start: 200910
  6. FAMOTIDINE/NIMESULIDE/PREDNISONE/CHLOROQUINE DIPHOSPHATE [Concomitant]
     Indication: RHEUMATIC DISORDER
     Dosage: (25MG/100MG/2.5MG/75MG)
     Route: 048
     Dates: start: 2009
  7. HYDROCHLOROTHIAZIDE. [Concomitant]
     Active Substance: HYDROCHLOROTHIAZIDE
     Indication: BLOOD PRESSURE ABNORMAL
     Route: 048
  8. SIMVASTATIN. [Concomitant]
     Active Substance: SIMVASTATIN
     Indication: BLOOD PRESSURE ABNORMAL
     Route: 048
     Dates: start: 2010
  9. HUMIRA [Suspect]
     Active Substance: ADALIMUMAB
     Indication: RHEUMATOID ARTHRITIS
     Route: 058
     Dates: start: 20060103
  10. GINKO BILOBA [Concomitant]
     Active Substance: GINKGO
     Indication: MEMORY IMPAIRMENT
  11. CALCIUM [Concomitant]
     Active Substance: CALCIUM
     Indication: BONE DISORDER
     Route: 048
  12. FAMOTIDINE/NIMESULIDE/PREDNISONE/CHLOROQUINE DIPHOSPHATE [Concomitant]
     Indication: PAIN
  13. FAMOTIDINE/PREDNISONE/NIMESULIDE/CYCLOBENZAPRINE [Concomitant]
     Indication: PAIN
  14. LOSARTAN [Concomitant]
     Active Substance: LOSARTAN
     Indication: BLOOD PRESSURE ABNORMAL
     Route: 048

REACTIONS (21)
  - Syncope [Recovered/Resolved]
  - Blindness [Recovered/Resolved]
  - Deafness [Recovered/Resolved]
  - Tongue disorder [Recovered/Resolved]
  - Cold sweat [Recovered/Resolved]
  - Injection site erythema [Recovered/Resolved]
  - Hypotension [Unknown]
  - Injection site erythema [Recovered/Resolved]
  - Application site pruritus [Recovered/Resolved]
  - Injection site pain [Not Recovered/Not Resolved]
  - Headache [Recovered/Resolved]
  - Drug administered at inappropriate site [Unknown]
  - Pain [Recovered/Resolved]
  - Application site erythema [Recovered/Resolved]
  - Diarrhoea [Recovered/Resolved]
  - Hypertension [Not Recovered/Not Resolved]
  - Injection site swelling [Recovered/Resolved]
  - Injection site pruritus [Recovered/Resolved]
  - Hypertensive crisis [Recovered/Resolved]
  - Vomiting [Recovered/Resolved]
  - Injection site pain [Recovered/Resolved]

NARRATIVE: CASE EVENT DATE: 2006
